FAERS Safety Report 9202392 (Version 2)
Quarter: 2013Q4

REPORT INFORMATION
  Report Type: Spontaneous
  Country: US (occurrence: US)
  Receive Date: 20130401
  Receipt Date: 20131009
  Transmission Date: 20140711
  Serious: Yes (Other)
  Sender: FDA-Public Use
  Company Number: US-PFIZER INC-2013101554

PATIENT
  Age: 53 Year
  Sex: Female
  Weight: 55.78 kg

DRUGS (5)
  1. LYRICA [Suspect]
     Indication: NEURALGIA
     Dosage: 150 MG, 2X/DAY
     Route: 048
  2. CORTIZONE [Suspect]
     Indication: FALL
     Dosage: UNK
  3. PROZAC [Concomitant]
     Dosage: UNK
  4. REMERON [Concomitant]
     Indication: DEPRESSION
     Dosage: 7.5 MG, UNK
     Route: 048
     Dates: start: 2013
  5. REMERON [Concomitant]
     Indication: SLEEP DISORDER

REACTIONS (5)
  - Fall [Unknown]
  - Malaise [Unknown]
  - Logorrhoea [Unknown]
  - Anxiety [Unknown]
  - Memory impairment [Unknown]
